FAERS Safety Report 14050134 (Version 1)
Quarter: 2017Q4

REPORT INFORMATION
  Report Type: Spontaneous
  Country: US (occurrence: US)
  Receive Date: 20171005
  Receipt Date: 20171005
  Transmission Date: 20180321
  Serious: No
  Sender: FDA-Public Use
  Company Number: US-ELI_LILLY_AND_COMPANY-US201710000319

PATIENT
  Age: 68 Year
  Sex: Male

DRUGS (3)
  1. CIALIS [Suspect]
     Active Substance: TADALAFIL
     Indication: ERECTILE DYSFUNCTION
     Dosage: 20 MG, UNK
     Route: 048
  2. METFORMIN [Concomitant]
     Active Substance: METFORMIN HYDROCHLORIDE
  3. CELEBREX [Concomitant]
     Active Substance: CELECOXIB

REACTIONS (3)
  - Drug ineffective [Not Recovered/Not Resolved]
  - Blood testosterone decreased [Recovered/Resolved]
  - Migraine [Recovering/Resolving]
